FAERS Safety Report 7022930-7 (Version None)
Quarter: 2010Q3

REPORT INFORMATION
  Report Type: 
  Country: None (occurrence: None)
  Receive Date: 20100930
  Receipt Date: 20100930
  Transmission Date: 20110219
  Serious: Yes (Other)
  Sender: FDA-Public Use
  Company Number: JP-PFIZER INC-2010121532

PATIENT
  Age: 85 Year
  Sex: Male
  Weight: 57.8 kg

DRUGS (14)
  1. LIPITOR [Suspect]
     Indication: HYPERTRIGLYCERIDAEMIA
     Dosage: 10 MG, 1X/DAY
     Route: 048
     Dates: start: 20100707, end: 20100728
  2. ARTIST [Concomitant]
     Dosage: UNK
  3. AMLODIPINE BESYLATE [Concomitant]
     Dosage: UNK
  4. EPADEL [Concomitant]
     Dosage: UNK
  5. GASMOTIN [Concomitant]
     Dosage: UNK
  6. SYMMETREL [Concomitant]
     Dosage: UNK
  7. SUCRALFATE [Concomitant]
     Dosage: UNK
  8. SODIUM PICOSULFATE [Concomitant]
     Dosage: UNK
  9. DIGOXIN [Concomitant]
     Dosage: UNK
  10. PERSANTIN [Concomitant]
     Dosage: UNK
  11. MIYARI BACTERIA [Concomitant]
     Dosage: UNK
  12. LANSOPRAZOLE [Concomitant]
     Dosage: UNK
  13. PILSICAINIDE HYDROCHLORIDE [Concomitant]
     Dosage: UNK
  14. DALACIN [Concomitant]
     Dosage: UNK

REACTIONS (2)
  - ERYTHEMA [None]
  - TOXIC SKIN ERUPTION [None]
